FAERS Safety Report 18718401 (Version 1)
Quarter: 2021Q1

REPORT INFORMATION
  Report Type: Spontaneous
  Country: JP (occurrence: JP)
  Receive Date: 20210108
  Receipt Date: 20210108
  Transmission Date: 20210419
  Serious: Yes (Hospitalization)
  Sender: FDA-Public Use
  Company Number: JP-MYOVANT SCIENCES GMBH-2020MYSCI1000023

PATIENT
  Age: 42 Year
  Sex: Female

DRUGS (3)
  1. RELUMINA [Suspect]
     Active Substance: RELUGOLIX
     Indication: MENORRHAGIA
     Dosage: 40 MILLIGRAM
     Route: 048
     Dates: start: 20191228, end: 20200113
  2. RELUMINA [Suspect]
     Active Substance: RELUGOLIX
     Indication: UTERINE LEIOMYOMA
     Dosage: 40 MILLIGRAM
     Route: 048
     Dates: start: 20200126, end: 20200315
  3. FUROSEMIDE. [Concomitant]
     Active Substance: FUROSEMIDE
     Indication: CARDIAC FAILURE
     Dosage: 20 MILLIGRAM, QD
     Route: 042
     Dates: start: 20191227, end: 20191228

REACTIONS (2)
  - Cerebral vasoconstriction [Recovering/Resolving]
  - Posterior reversible encephalopathy syndrome [Recovering/Resolving]

NARRATIVE: CASE EVENT DATE: 20200113
